FAERS Safety Report 4744700-2 (Version None)
Quarter: 2005Q3

REPORT INFORMATION
  Report Type: 
  Country: None (occurrence: None)
  Receive Date: 20050815
  Receipt Date: 20050809
  Transmission Date: 20060218
  Serious: Yes (Other)
  Sender: FDA-Public Use
  Company Number: 2005UW11702

PATIENT
  Age: 30574 Day
  Sex: Female
  Weight: 47.3 kg

DRUGS (3)
  1. ARIMIDEX [Suspect]
     Indication: BREAST CANCER STAGE IV
     Route: 048
     Dates: start: 20041214, end: 20050526
  2. PROZAC [Concomitant]
     Indication: NEUROPATHY
  3. FOSAMAX [Concomitant]
     Indication: GUILLAIN-BARRE SYNDROME

REACTIONS (1)
  - ORTHOSTATIC HYPOTENSION [None]
